FAERS Safety Report 9657931 (Version 1)
Quarter: 2013Q4

REPORT INFORMATION
  Report Type: Spontaneous
  Country: IT (occurrence: IT)
  Receive Date: 20131030
  Receipt Date: 20131030
  Transmission Date: 20140711
  Serious: Yes (Other)
  Sender: FDA-Public Use
  Company Number: PHHY2013IT118799

PATIENT
  Age: 71 Year
  Sex: Female

DRUGS (1)
  1. ANASTROZOLE [Suspect]
     Indication: BREAST CANCER

REACTIONS (10)
  - Sjogren^s syndrome [Unknown]
  - Arthralgia [Unknown]
  - Dry mouth [Unknown]
  - Dysphonia [Unknown]
  - Mastication disorder [Unknown]
  - Thirst [Unknown]
  - Dry eye [Unknown]
  - Eye irritation [Unknown]
  - Eye pruritus [Unknown]
  - Foreign body sensation in eyes [Unknown]
